FAERS Safety Report 15058944 (Version 1)
Quarter: 2018Q3

REPORT INFORMATION
  Report Type: Report from Study
  Country: IT (occurrence: IT)
  Receive Date: 20180625
  Receipt Date: 20180625
  Transmission Date: 20181010
  Serious: Yes (Hospitalization)
  Sender: FDA-Public Use
  Company Number: IT-PFIZER INC-2018251701

PATIENT
  Age: 48 Year
  Sex: Female

DRUGS (5)
  1. VENLAFAXINA TEVA [Concomitant]
     Dosage: UNK
     Route: 048
  2. TAVOR (LORAZEPAM) [Suspect]
     Active Substance: LORAZEPAM
     Dosage: 17.5 MG, SINGLE
     Route: 048
     Dates: start: 20160617, end: 20160617
  3. VENLAFAXINA TEVA [Concomitant]
     Dosage: UNK
     Route: 048
  4. BISOPROLOLO SANDOZ [Concomitant]
     Active Substance: BISOPROLOL FUMARATE
     Dosage: UNK
     Route: 048
  5. SERTRALINA TEVA [Suspect]
     Active Substance: SERTRALINE HYDROCHLORIDE
     Indication: DEPRESSION
     Dosage: 600 MG, SINGLE
     Route: 048
     Dates: start: 20160617, end: 20160617

REACTIONS (2)
  - Intentional overdose [Recovered/Resolved]
  - Intentional self-injury [Recovered/Resolved]

NARRATIVE: CASE EVENT DATE: 20160617
